FAERS Safety Report 6800877-6 (Version None)
Quarter: 2010Q2

REPORT INFORMATION
  Report Type: 
  Country: None (occurrence: None)
  Receive Date: 20100629
  Receipt Date: 20100622
  Transmission Date: 20101027
  Serious: Yes (Other)
  Sender: FDA-Public Use
  Company Number: US-JNJCH-2010014893

PATIENT
  Age: 47 Year
  Sex: Female
  Weight: 108 kg

DRUGS (1)
  1. LISTERINE WHITENING VIBRANT WHITE PRE-BRUSH RINSE [Suspect]
     Indication: DENTAL CARE
     Dosage: TEXT:ONE CAPFUL ONCE A DAY
     Route: 048
     Dates: start: 20100619, end: 20100622

REACTIONS (3)
  - SKIN DISCOLOURATION [None]
  - SWELLING FACE [None]
  - TOOTH ABSCESS [None]
